FAERS Safety Report 10189679 (Version 1)
Quarter: 2014Q2

REPORT INFORMATION
  Report Type: Spontaneous
  Country: US (occurrence: US)
  Receive Date: 20140522
  Receipt Date: 20140522
  Transmission Date: 20141212
  Serious: Yes (Hospitalization)
  Sender: FDA-Public Use
  Company Number: US-SANOFI-AVENTIS-2013SA090492

PATIENT
  Age: 63 Year
  Sex: Male
  Weight: 100 kg

DRUGS (3)
  1. LANTUS [Suspect]
     Indication: DIABETES MELLITUS
     Route: 065
     Dates: end: 201308
  2. HUMALOG [Suspect]
     Indication: DIABETES MELLITUS
     Dosage: 4XDAY DOSE:100 UNIT(S)
     Route: 065
     Dates: end: 201308
  3. REVATIO [Suspect]
     Indication: CARDIAC DISORDER
     Route: 065
     Dates: end: 201308

REACTIONS (3)
  - Diabetic coma [Recovered/Resolved]
  - Blood glucose decreased [Recovered/Resolved]
  - Overdose [Unknown]
